FAERS Safety Report 4397841-6 (Version None)
Quarter: 2004Q2

REPORT INFORMATION
  Report Type: 
  Country: None (occurrence: None)
  Receive Date: 20040621
  Receipt Date: 20040330
  Transmission Date: 20050107
  Serious: Yes (Hospitalization, Other)
  Sender: FDA-Public Use
  Company Number: USA-2004-0014182

PATIENT
  Age: 45 Year
  Sex: Male

DRUGS (1)
  1. OXYCONTIN [Suspect]
     Dosage: 240 MG Q12H

REACTIONS (8)
  - BACK PAIN [None]
  - BLOOD CALCIUM INCREASED [None]
  - DRUG DEPENDENCE [None]
  - DRUG WITHDRAWAL SYNDROME [None]
  - DYSPEPSIA [None]
  - FEELING COLD [None]
  - GRAND MAL CONVULSION [None]
  - PAIN [None]
